FAERS Safety Report 15348147 (Version 1)
Quarter: 2018Q3

REPORT INFORMATION
  Report Type: Spontaneous
  Country: DE (occurrence: DE)
  Receive Date: 20180904
  Receipt Date: 20180904
  Transmission Date: 20181010
  Serious: Yes (Death)
  Sender: FDA-Public Use
  Company Number: DE-009507513-1808DEU013706

PATIENT
  Sex: Male

DRUGS (1)
  1. PREVYMIS [Suspect]
     Active Substance: LETERMOVIR
     Indication: CYTOMEGALOVIRUS INFECTION
     Dosage: UNK
     Route: 048

REACTIONS (4)
  - Disease progression [Fatal]
  - Drug effective for unapproved indication [Unknown]
  - General physical health deterioration [Fatal]
  - Off label use [Unknown]
